FAERS Safety Report 7012780-X (Version None)
Quarter: 2010Q3

REPORT INFORMATION
  Report Type: 
  Country: None (occurrence: None)
  Receive Date: 20100924
  Receipt Date: 20100917
  Transmission Date: 20110219
  Serious: Yes (Death, Hospitalization)
  Sender: FDA-Public Use
  Company Number: A0882834A

PATIENT
  Sex: Male

DRUGS (4)
  1. SERETIDE [Suspect]
     Indication: CHRONIC OBSTRUCTIVE PULMONARY DISEASE
     Dosage: 1PUFF TWICE PER DAY
     Route: 055
     Dates: start: 20100501, end: 20100801
  2. AMILORIDE + FRUSEMIDE [Concomitant]
     Dosage: 1TAB PER DAY
     Dates: start: 20080101, end: 20100801
  3. SUSTRATE [Concomitant]
     Dosage: 1TAB TWICE PER DAY
     Dates: start: 20060101, end: 20100801
  4. OMEPRAZOLE [Concomitant]
     Dosage: 1TAB PER DAY
     Dates: start: 20100501, end: 20100801

REACTIONS (2)
  - DYSPNOEA [None]
  - FIBROSIS [None]
